FAERS Safety Report 26012586 (Version 1)
Quarter: 2025Q4

REPORT INFORMATION
  Report Type: Spontaneous
  Country: US (occurrence: US)
  Receive Date: 20251107
  Receipt Date: 20251107
  Transmission Date: 20260117
  Serious: Yes (Other)
  Sender: ALEXION PHARMACEUTICALS
  Company Number: US-AstraZeneca-CH-00985214A

PATIENT
  Sex: Female

DRUGS (1)
  1. FARXIGA [Suspect]
     Active Substance: DAPAGLIFLOZIN PROPANEDIOL
     Indication: Chronic kidney disease

REACTIONS (13)
  - Diabetes mellitus [Unknown]
  - Glomerular filtration rate decreased [Unknown]
  - Blood creatinine increased [Unknown]
  - Glycosylated haemoglobin increased [Unknown]
  - Sinusitis [Unknown]
  - Hypoglycaemia [Unknown]
  - Lymphadenopathy [Unknown]
  - Blood albumin increased [Unknown]
  - White blood cell count increased [Unknown]
  - Urinary casts [Unknown]
  - Albumin urine present [Unknown]
  - Blood urine present [Unknown]
  - Proteinuria [Unknown]
